FAERS Safety Report 14709896 (Version 1)
Quarter: 2018Q2

REPORT INFORMATION
  Report Type: Spontaneous
  Country: US (occurrence: US)
  Receive Date: 20180403
  Receipt Date: 20180403
  Transmission Date: 20180711
  Serious: No
  Sender: FDA-Public Use
  Company Number: US-NEOS THERAPEUTICS, LP-2018NEO00031

PATIENT
  Age: 8 Year
  Sex: Male
  Weight: 25.13 kg

DRUGS (1)
  1. COTEMPLA XR-ODT [Suspect]
     Active Substance: METHYLPHENIDATE
     Indication: ATTENTION DEFICIT/HYPERACTIVITY DISORDER
     Dosage: 34.6 MG, 1X/DAY
     Route: 048
     Dates: start: 20180117, end: 20180201

REACTIONS (10)
  - Impulsive behaviour [Recovered/Resolved]
  - Anxiety [Unknown]
  - Muscle twitching [Recovered/Resolved]
  - Heart rate increased [Recovered/Resolved]
  - Restlessness [Recovered/Resolved]
  - Lid sulcus deepened [Recovered/Resolved]
  - Tic [Recovered/Resolved]
  - Drug ineffective [Recovered/Resolved]
  - Fatigue [Recovered/Resolved]
  - Insomnia [Recovered/Resolved]

NARRATIVE: CASE EVENT DATE: 201801
